APPROVED DRUG PRODUCT: VESICARE LS
Active Ingredient: SOLIFENACIN SUCCINATE
Strength: 1MG/ML
Dosage Form/Route: SUSPENSION;ORAL
Application: N209529 | Product #001
Applicant: ASTELLAS PHARMA US INC
Approved: May 26, 2020 | RLD: Yes | RS: No | Type: DISCN

PATENTS:
Patent 9918970 | Expires: May 18, 2031